FAERS Safety Report 9027861 (Version 1)
Quarter: 2013Q1

REPORT INFORMATION
  Report Type: Spontaneous
  Country: US (occurrence: None)
  Receive Date: 20130115
  Receipt Date: 20130115
  Transmission Date: 20140127
  Serious: Yes (Life-Threatening, Disabling)
  Sender: FDA-Public Use
  Company Number: None

PATIENT
  Age: 45 Year
  Sex: Female
  Weight: 63.5 kg

DRUGS (1)
  1. TERBUTALINE SULFATE [Suspect]
     Indication: PREMATURE LABOUR
     Dosage: 09/01/2004 12/15/2004  3.5 MONTHS
     Route: 048
     Dates: start: 20040901, end: 20041215

REACTIONS (2)
  - Aortic aneurysm [None]
  - Exposure during pregnancy [None]
